FAERS Safety Report 23097610 (Version 3)
Quarter: 2024Q1

REPORT INFORMATION
  Report Type: Spontaneous
  Country: FR (occurrence: FR)
  Receive Date: 20231023
  Receipt Date: 20240208
  Transmission Date: 20240410
  Serious: Yes (Other)
  Sender: FDA-Public Use
  Company Number: FR-SAKK-2018SA153712AA

PATIENT
  Age: 1 Day
  Sex: Male
  Weight: 1.89 kg

DRUGS (41)
  1. NICODERM CQ [Suspect]
     Active Substance: NICOTINE
     Indication: Ex-tobacco user
     Dosage: 7 MG, QD
     Dates: start: 20170224, end: 20170516
  2. FOLIC ACID [Suspect]
     Active Substance: FOLIC ACID
     Indication: Normochromic normocytic anaemia
     Dosage: 5 MG, QD
     Route: 064
     Dates: start: 20170224, end: 20170313
  3. FOLIC ACID [Suspect]
     Active Substance: FOLIC ACID
     Dosage: 5 MG, QD
     Route: 064
     Dates: start: 20170224, end: 20170914
  4. LANTUS [Suspect]
     Active Substance: INSULIN GLARGINE
     Indication: Type 2 diabetes mellitus
     Dosage: 20 IU, QD
     Route: 064
     Dates: start: 20170224, end: 20170914
  5. RAMIPRIL [Suspect]
     Active Substance: RAMIPRIL
     Indication: Hypertension
     Dosage: 2.5 MG, QD
     Route: 064
     Dates: start: 20160930, end: 20170224
  6. CHLORPROMAZINE PAMOATE [Suspect]
     Active Substance: CHLORPROMAZINE PAMOATE
     Indication: Bipolar I disorder
     Dosage: 25 MG, QD
     Route: 064
  7. CHLORPROMAZINE PAMOATE [Suspect]
     Active Substance: CHLORPROMAZINE PAMOATE
     Dosage: 0.5 DF
     Route: 064
  8. CHLORPROMAZINE PAMOATE [Suspect]
     Active Substance: CHLORPROMAZINE PAMOATE
     Dosage: UNK
  9. METFORMIN HYDROCHLORIDE [Suspect]
     Active Substance: METFORMIN HYDROCHLORIDE
     Indication: Type 2 diabetes mellitus
     Dosage: 850 MG, QD
     Route: 064
     Dates: start: 20160930, end: 20170224
  10. METFORMIN HYDROCHLORIDE [Suspect]
     Active Substance: METFORMIN HYDROCHLORIDE
     Dosage: 1700 MG, QD
     Route: 064
     Dates: start: 20160930, end: 20170224
  11. METFORMIN HYDROCHLORIDE [Suspect]
     Active Substance: METFORMIN HYDROCHLORIDE
     Dosage: 1700 MG, QD
     Route: 064
     Dates: start: 20170804
  12. METFORMIN HYDROCHLORIDE [Suspect]
     Active Substance: METFORMIN HYDROCHLORIDE
     Dosage: 850 MG, QD
     Route: 064
     Dates: start: 20170224
  13. TRAMADOL HYDROCHLORIDE [Suspect]
     Active Substance: TRAMADOL HYDROCHLORIDE
     Indication: Diabetic neuropathy
     Dosage: 50 MG, QD
     Route: 064
     Dates: start: 20160930, end: 20170306
  14. FUROSEMIDE [Suspect]
     Active Substance: FUROSEMIDE
     Indication: Hypertension
     Dosage: 40 MG
     Route: 064
     Dates: start: 20170516
  15. FUROSEMIDE [Suspect]
     Active Substance: FUROSEMIDE
     Dosage: 50 MG
     Route: 064
     Dates: start: 201705
  16. GABAPENTIN [Suspect]
     Active Substance: GABAPENTIN
     Indication: Diabetic neuropathy
     Dosage: 800 MG, QD
     Route: 064
     Dates: start: 20160930
  17. GABAPENTIN [Suspect]
     Active Substance: GABAPENTIN
     Dosage: 400 MG, QD
     Route: 064
     Dates: start: 20160930
  18. METHYLDOPA [Suspect]
     Active Substance: METHYLDOPA
     Indication: Hypertension
     Dosage: 1500 MG, QD
     Route: 064
  19. GLICLAZIDE [Suspect]
     Active Substance: GLICLAZIDE
     Indication: Type 2 diabetes mellitus
     Dosage: 120 MG, QD
     Route: 064
     Dates: start: 20160930, end: 20170224
  20. AMOXICILLIN [Suspect]
     Active Substance: AMOXICILLIN
     Indication: Product used for unknown indication
     Dosage: 3 G, QD
     Route: 064
     Dates: end: 20170914
  21. AMOXICILLIN [Suspect]
     Active Substance: AMOXICILLIN
     Dosage: 3 G, QD
     Route: 064
     Dates: start: 20170804, end: 20180811
  22. AMOXICILLIN [Suspect]
     Active Substance: AMOXICILLIN
     Dosage: 3 G, QD
     Route: 064
     Dates: end: 20170804
  23. NICARDIPINE [Suspect]
     Active Substance: NICARDIPINE
     Indication: Hypertension
     Dosage: 50 MG, BID
     Route: 064
     Dates: start: 20170405, end: 20170914
  24. NICARDIPINE [Suspect]
     Active Substance: NICARDIPINE
     Dosage: 50 MG, BID
     Route: 064
     Dates: start: 20170313, end: 20170405
  25. FERROUS SULFATE [Suspect]
     Active Substance: FERROUS SULFATE
     Indication: Normochromic normocytic anaemia
     Dosage: 1 DF, QD
     Route: 064
     Dates: start: 20170313, end: 20170914
  26. FERROUS SULFATE [Suspect]
     Active Substance: FERROUS SULFATE
     Dosage: 1 DF, QD
     Route: 064
     Dates: start: 20170313
  27. PROPRANOLOL HYDROCHLORIDE [Suspect]
     Active Substance: PROPRANOLOL HYDROCHLORIDE
     Indication: Hypertension
     Dosage: 80 MG, QD
     Route: 064
     Dates: start: 20170516
  28. PROPRANOLOL HYDROCHLORIDE [Suspect]
     Active Substance: PROPRANOLOL HYDROCHLORIDE
     Dosage: 25 MG, QD
     Route: 064
     Dates: start: 20170720
  29. LEUCOVORIN CALCIUM [Suspect]
     Active Substance: LEUCOVORIN CALCIUM
     Indication: Normochromic normocytic anaemia
     Dosage: 5 MG, QD
     Route: 064
     Dates: start: 20170224, end: 20170313
  30. AMITRIPTYLINE HYDROCHLORIDE [Suspect]
     Active Substance: AMITRIPTYLINE HYDROCHLORIDE
     Indication: Diabetic neuropathy
     Dosage: 2 DF, QD
     Route: 064
     Dates: start: 20160930, end: 20170914
  31. POTASSIUM CHLORIDE [Suspect]
     Active Substance: POTASSIUM CHLORIDE
     Indication: Hypokalaemia
     Dosage: 1200 MG, QD (2 TO 3 TIMES PER DAY)
     Route: 064
  32. POTASSIUM CHLORIDE [Suspect]
     Active Substance: POTASSIUM CHLORIDE
     Dosage: UNK
  33. INSULIN LISPRO [Suspect]
     Active Substance: INSULIN LISPRO
     Indication: Type 2 diabetes mellitus
     Dosage: 21 UG/M2, QD
     Route: 064
     Dates: start: 20170224, end: 20170224
  34. INSULIN LISPRO [Suspect]
     Active Substance: INSULIN LISPRO
     Dosage: 7 UG/M2, QD
     Route: 064
     Dates: start: 201702, end: 201702
  35. ARIPIPRAZOLE [Suspect]
     Active Substance: ARIPIPRAZOLE
     Indication: Bipolar I disorder
     Dosage: 10 MG, QD
     Route: 064
     Dates: start: 20160930, end: 20170224
  36. LABETALOL HYDROCHLORIDE [Suspect]
     Active Substance: LABETALOL HYDROCHLORIDE
     Indication: Hypertension
     Dosage: 80 MG, QD
     Route: 064
     Dates: start: 20170516, end: 20170914
  37. LEUCOVORIN [Suspect]
     Active Substance: LEUCOVORIN\LEUCOVORIN CALCIUM
     Indication: Normochromic normocytic anaemia
     Dosage: 5 MG, QD
     Route: 064
     Dates: start: 20170224, end: 20170914
  38. INSULIN NOS [Suspect]
     Active Substance: INSULIN NOS
     Indication: Type 2 diabetes mellitus
     Dosage: UNK
     Route: 064
     Dates: start: 20160930, end: 20170224
  39. LEVEMIR [Suspect]
     Active Substance: INSULIN DETEMIR
     Indication: Type 2 diabetes mellitus
     Dosage: 10 IU, QD
     Dates: start: 20160930, end: 20170224
  40. POLYETHYLENE GLYCOL 4000 [Suspect]
     Active Substance: POLYETHYLENE GLYCOL 4000
     Indication: Constipation
     Dosage: 1 DF, QD
     Route: 064
     Dates: start: 20160930, end: 20170405
  41. POLYETHYLENE GLYCOL 4000 [Suspect]
     Active Substance: POLYETHYLENE GLYCOL 4000
     Dosage: 120 MG, QD
     Route: 064
     Dates: start: 20160930, end: 20170224

REACTIONS (5)
  - Neutropenia neonatal [Not Recovered/Not Resolved]
  - Premature baby [Recovered/Resolved]
  - Foetal disorder [Unknown]
  - Low birth weight baby [Unknown]
  - Foetal exposure during pregnancy [Unknown]

NARRATIVE: CASE EVENT DATE: 20170714
